FAERS Safety Report 7184406-6 (Version None)
Quarter: 2010Q4

REPORT INFORMATION
  Report Type: 
  Country: None (occurrence: None)
  Receive Date: 20101222
  Receipt Date: 20100802
  Transmission Date: 20110411
  Serious: No
  Sender: FDA-Public Use
  Company Number: US-PFIZER INC-2010099092

PATIENT
  Sex: Female
  Weight: 72.5 kg

DRUGS (5)
  1. DIFLUCAN [Suspect]
     Indication: VULVOVAGINAL MYCOTIC INFECTION
     Dosage: UNK
     Dates: start: 20100731
  2. PREMARIN [Suspect]
     Indication: VULVOVAGINAL DRYNESS
     Dosage: 1 G, 3X/ WEEK
     Dates: start: 20100730, end: 20100802
  3. PREMARIN [Suspect]
     Indication: PAIN
  4. PREMARIN [Suspect]
     Indication: CYSTOCELE
  5. ATENOLOL [Concomitant]
     Dosage: 100 MG, DAILY

REACTIONS (3)
  - DRUG ADMINISTRATION ERROR [None]
  - VULVOVAGINAL BURNING SENSATION [None]
  - VULVOVAGINAL MYCOTIC INFECTION [None]
